FAERS Safety Report 21810310 (Version 1)
Quarter: 2023Q1

REPORT INFORMATION
  Report Type: Spontaneous
  Country: US (occurrence: None)
  Receive Date: 20230101
  Receipt Date: 20230101
  Transmission Date: 20230418
  Serious: Yes (Other)
  Sender: FDA-Public Use
  Company Number: None

PATIENT
  Age: 64 Year
  Sex: Female
  Weight: 80.1 kg

DRUGS (1)
  1. EVUSHELD [Suspect]
     Active Substance: CILGAVIMAB\TIXAGEVIMAB
     Indication: COVID-19 prophylaxis
     Route: 058
     Dates: start: 20221020, end: 20221020

REACTIONS (8)
  - Hyperhidrosis [None]
  - Blood pressure increased [None]
  - Anxiety [None]
  - Insomnia [None]
  - Tremor [None]
  - Adrenal adenoma [None]
  - Blood test abnormal [None]
  - Blood chromogranin A increased [None]

NARRATIVE: CASE EVENT DATE: 20221112
